FAERS Safety Report 19351463 (Version 2)
Quarter: 2021Q2

REPORT INFORMATION
  Report Type: Spontaneous
  Country: US (occurrence: US)
  Receive Date: 20210531
  Receipt Date: 20210608
  Transmission Date: 20210717
  Serious: Yes (Other)
  Sender: FDA-Public Use
  Company Number: US-PFIZER INC-2021600670

PATIENT
  Age: 62 Year
  Sex: Female

DRUGS (5)
  1. BENZYLPENICILLIN POTASSIUM [Suspect]
     Active Substance: PENICILLIN G POTASSIUM
     Dosage: FOUR MILLION UNITS EVERY 4 HOURS
     Route: 042
     Dates: start: 197302, end: 19730306
  2. BENZYLPENICILLIN POTASSIUM [Suspect]
     Active Substance: PENICILLIN G POTASSIUM
     Indication: ANTIBIOTIC THERAPY
     Dosage: TWO MILLION UNITS EVERY 4 HOURS
     Route: 042
     Dates: start: 19730206, end: 197302
  3. ACETAMINOPHEN. [Concomitant]
     Active Substance: ACETAMINOPHEN
     Dosage: UNK
  4. STREPTOMYCIN [Concomitant]
     Active Substance: STREPTOMYCIN SULFATE
     Indication: ANTIBIOTIC THERAPY
     Dosage: 1 G, DAILY
  5. CHLORAL HYDRATE [Concomitant]
     Active Substance: CHLORAL HYDRATE
     Dosage: UNK

REACTIONS (3)
  - Ecchymosis [Recovered/Resolved]
  - Bleeding time prolonged [Recovered/Resolved]
  - Purpura [Recovered/Resolved]

NARRATIVE: CASE EVENT DATE: 197302
